FAERS Safety Report 9216704 (Version 1)
Quarter: 2013Q1

REPORT INFORMATION
  Report Type: Spontaneous
  Country: JP (occurrence: None)
  Receive Date: 20130206
  Receipt Date: 20130206
  Transmission Date: 20140127
  Serious: Yes (Hospitalization)
  Sender: FDA-Public Use
  Company Number: TCI2013A00135

PATIENT
  Age: 40 Year
  Sex: Male

DRUGS (11)
  1. NESINA [Suspect]
     Indication: DIABETES MELLITUS
     Route: 048
     Dates: end: 20121119
  2. TAKEPRON OD [Concomitant]
  3. AMARYL (GLIMEPIRIDE) [Concomitant]
  4. METGLUCO (METFORMIN HYDROCHLORIDE) [Concomitant]
  5. URSO (URSODEOXYCHOLIC ACID) [Concomitant]
  6. LIPIDIL (FENOFIBRATE) [Concomitant]
  7. EPADEL-S (EICOSAPENTAENOIC ACID ETHYL ESTER) [Concomitant]
  8. MONTELUKAST SODIUM [Suspect]
  9. THEOLONG (THEOPHYLINES) [Concomitant]
  10. ADDAIR 250 DISKUS (FLUTICASONE PROPIONATE, SALMETEROL XINAFOATE) [Concomitant]
  11. MEDET (METFORMIN HYDROCHLORIDE) [Concomitant]

REACTIONS (6)
  - Pancreatitis acute [None]
  - Diabetes mellitus inadequate control [None]
  - Glycosylated haemoglobin increased [None]
  - Pancreatitis chronic [None]
  - Cholelithiasis [None]
  - Hepatic steatosis [None]
